FAERS Safety Report 23138774 (Version 2)
Quarter: 2023Q4

REPORT INFORMATION
  Report Type: Report from Study
  Country: US (occurrence: US)
  Receive Date: 20231102
  Receipt Date: 20231115
  Transmission Date: 20240110
  Serious: Yes (Other)
  Sender: FDA-Public Use
  Company Number: US-HBP-2023US028765

PATIENT
  Sex: Female

DRUGS (10)
  1. VALCHLOR [Suspect]
     Active Substance: MECHLORETHAMINE
     Indication: Cutaneous T-cell lymphoma
     Dosage: THIN FILM, ONCE DAILY TO AFFECTED AREAS
     Route: 061
     Dates: start: 20230330
  2. VALCHLOR [Suspect]
     Active Substance: MECHLORETHAMINE
     Dosage: THIN FILM, ONCE DAILY TO AFFECTED AREAS
     Route: 061
     Dates: start: 202311
  3. PROPRANOLOL HYDROCHLORIDE [Suspect]
     Active Substance: PROPRANOLOL HYDROCHLORIDE
     Indication: Tremor
     Dosage: UNK, UNKNOWN
     Dates: end: 202304
  4. SUCRALFATE [Concomitant]
     Active Substance: SUCRALFATE
     Dosage: UNK, UNKNOWN
  5. CELECOXIB [Concomitant]
     Active Substance: CELECOXIB
     Dosage: UNK, UNKNOWN
  6. AMLODIPINE BESYLATE [Concomitant]
     Active Substance: AMLODIPINE BESYLATE
     Dosage: UNK, UNKNOWN
  7. ALLOPURINOL [Concomitant]
     Active Substance: ALLOPURINOL
     Dosage: UNK, UNKNOWN
  8. LOSARTAN POTASSIUM [Concomitant]
     Active Substance: LOSARTAN POTASSIUM
     Dosage: UNK, UNKNOWN
  9. FLUOXETINE HYDROCHLORIDE [Concomitant]
     Active Substance: FLUOXETINE HYDROCHLORIDE
     Dosage: UNK, UNKNOWN
  10. PRIMIDONE [Concomitant]
     Active Substance: PRIMIDONE
     Indication: Tremor
     Dosage: UNK, UNKNOWN
     Dates: start: 202304

REACTIONS (18)
  - Malignant melanoma [Recovered/Resolved]
  - Cutaneous T-cell lymphoma [Unknown]
  - Skin lesion [Unknown]
  - Skin discolouration [Unknown]
  - Sensitive skin [Unknown]
  - Weight increased [Unknown]
  - Increased appetite [Unknown]
  - Joint swelling [Unknown]
  - Skin neoplasm excision [Unknown]
  - Hernia [Unknown]
  - Constipation [Unknown]
  - Gastrooesophageal reflux disease [Unknown]
  - Post procedural infection [Recovered/Resolved]
  - Product use issue [Unknown]
  - Drug ineffective [Unknown]
  - Application site erythema [Recovered/Resolved]
  - Application site irritation [Recovered/Resolved]
  - Application site rash [Not Recovered/Not Resolved]

NARRATIVE: CASE EVENT DATE: 20230101
